FAERS Safety Report 6291052-5 (Version None)
Quarter: 2009Q3

REPORT INFORMATION
  Report Type: 
  Country: None (occurrence: None)
  Receive Date: 20090730
  Receipt Date: 20090720
  Transmission Date: 20100115
  Serious: Yes (Hospitalization)
  Sender: FDA-Public Use
  Company Number: US-PFIZER INC-2009242993

PATIENT
  Age: 77 Year
  Sex: Female

DRUGS (3)
  1. IRINOTECAN HCL [Suspect]
     Indication: COLON CANCER METASTATIC
     Dosage: 200 MG/M2, ON DAY 1EVERY 21 DAYS
  2. XELODA [Suspect]
     Indication: COLON CANCER METASTATIC
     Dosage: 1000 MG/M2, TWICE DAILY ON DAYS 1-14 EVERY 21 DAYS
  3. BEVACIZUMAB [Suspect]
     Indication: COLON CANCER METASTATIC
     Dosage: 7.5 MG/KG, ON DAY 1EVERY 21 DAYS

REACTIONS (3)
  - DIARRHOEA [None]
  - FANCONI SYNDROME ACQUIRED [None]
  - VOMITING [None]
